FAERS Safety Report 10570907 (Version 1)
Quarter: 2014Q4

REPORT INFORMATION
  Report Type: Spontaneous
  Country: US (occurrence: US)
  Receive Date: 20141107
  Receipt Date: 20141107
  Transmission Date: 20150529
  Serious: No
  Sender: FDA-Public Use
  Company Number: US-BAUSCH-SYM-2013-13339

PATIENT
  Sex: Male

DRUGS (2)
  1. NIFEDICAL XL [Suspect]
     Active Substance: NIFEDIPINE
     Indication: HYPERTENSION
  2. NIFEDIAC CC [Suspect]
     Active Substance: NIFEDIPINE

REACTIONS (2)
  - Nervous system disorder [Unknown]
  - Drug ineffective [Unknown]
